FAERS Safety Report 8300927-4 (Version None)
Quarter: 2012Q2

REPORT INFORMATION
  Report Type: 
  Country: None (occurrence: None)
  Receive Date: 20120420
  Receipt Date: 20120409
  Transmission Date: 20120825
  Serious: Yes (Other)
  Sender: FDA-Public Use
  Company Number: BR-JNJFOC-20120405334

PATIENT
  Age: 64 Year
  Sex: Female
  Weight: 73 kg

DRUGS (5)
  1. PREDNISONE TAB [Concomitant]
     Route: 065
     Dates: start: 20120402
  2. ENALAPRIL MALEATE [Concomitant]
     Indication: HYPERTENSION
     Route: 065
     Dates: start: 20020101
  3. SIMVASTATIN [Concomitant]
     Indication: BLOOD CHOLESTEROL INCREASED
     Route: 065
     Dates: start: 20110101
  4. REMICADE [Suspect]
     Indication: RHEUMATOID ARTHRITIS
     Route: 042
     Dates: start: 20120402
  5. ARAVA [Concomitant]
     Indication: RHEUMATOID ARTHRITIS
     Route: 065
     Dates: start: 20110101

REACTIONS (8)
  - INFUSION RELATED REACTION [None]
  - VEIN PAIN [None]
  - PRURITUS [None]
  - APPLICATION SITE ERYTHEMA [None]
  - NECROSIS ISCHAEMIC [None]
  - PHLEBOSCLEROSIS [None]
  - APPLICATION SITE PAIN [None]
  - DIARRHOEA [None]
